FAERS Safety Report 8992853 (Version 3)
Quarter: 2013Q1

REPORT INFORMATION
  Report Type: Spontaneous
  Country: US (occurrence: US)
  Receive Date: 20130102
  Receipt Date: 20130111
  Transmission Date: 20140127
  Serious: No
  Sender: FDA-Public Use
  Company Number: US-009507513-1212USA008148

PATIENT
  Sex: Male

DRUGS (3)
  1. VICTRELIS [Suspect]
     Indication: HEPATITIS C
     Dosage: 200 MG, UNK
     Route: 048
     Dates: start: 20121201
  2. PEGINTRON [Suspect]
     Indication: HEPATITIS C
     Dosage: UNK
  3. RIBASPHERE [Suspect]
     Indication: HEPATITIS C
     Dosage: UNK

REACTIONS (4)
  - Dyspnoea [Unknown]
  - Rash [Unknown]
  - Fatigue [Unknown]
  - Dizziness [Unknown]
